FAERS Safety Report 8403112-0 (Version None)
Quarter: 2012Q2

REPORT INFORMATION
  Report Type: 
  Country: None (occurrence: None)
  Receive Date: 20120601
  Receipt Date: 20120525
  Transmission Date: 20120825
  Serious: Yes (Hospitalization)
  Sender: FDA-Public Use
  Company Number: AU-JNJFOC-20111200931

PATIENT
  Sex: Male
  Weight: 86 kg

DRUGS (13)
  1. PANTOPRAZOLE [Concomitant]
     Indication: GASTROINTESTINAL DISORDER THERAPY
     Route: 065
     Dates: start: 20100101
  2. VENLAFAXINE [Concomitant]
     Indication: DEPRESSION
     Route: 065
     Dates: start: 20110816
  3. ABIRATERONE ACETATE [Suspect]
     Route: 048
     Dates: start: 20111118, end: 20111119
  4. OXYCONTIN [Concomitant]
     Indication: PAIN MANAGEMENT
     Route: 065
     Dates: start: 20100101
  5. CELEBREX [Concomitant]
     Indication: OSTEOARTHRITIS
     Route: 065
     Dates: start: 20000101, end: 20111118
  6. IRON PLUS [Concomitant]
     Indication: ANAEMIA
     Route: 065
     Dates: start: 20110101
  7. PREDNISOLONE [Suspect]
     Indication: PROSTATE CANCER METASTATIC
     Route: 048
     Dates: start: 20111118
  8. OXYCODONE HYDROCHLORIDE [Concomitant]
     Indication: PAIN MANAGEMENT
     Route: 065
     Dates: start: 20100101
  9. ZOMETA [Concomitant]
     Indication: METASTASES TO BONE
     Route: 065
     Dates: start: 20090101
  10. OXYCONTIN [Concomitant]
     Route: 065
     Dates: start: 20111024, end: 20111219
  11. ACETAMINOPHEN [Concomitant]
     Indication: PAIN
     Route: 065
     Dates: start: 20090101
  12. ABIRATERONE ACETATE [Suspect]
     Indication: PROSTATE CANCER METASTATIC
     Route: 048
     Dates: end: 20120212
  13. MULTI-VITAMINS [Concomitant]
     Indication: MEDICAL DIET
     Route: 065
     Dates: start: 20110101

REACTIONS (1)
  - TUMOUR FLARE [None]
